FAERS Safety Report 5162211-X (Version None)
Quarter: 2006Q4

REPORT INFORMATION
  Report Type: 
  Country: None (occurrence: None)
  Receive Date: 20061121
  Receipt Date: 20061107
  Transmission Date: 20070319
  Serious: Yes (Life-Threatening, Hospitalization)
  Sender: FDA-Public Use
  Company Number: 231044

PATIENT
  Age: 59 Year
  Sex: Female
  Weight: 56 kg

DRUGS (15)
  1. AVASTIN [Suspect]
     Indication: PANCREATIC CARCINOMA METASTATIC
     Dosage: 10 MG/KG, Q2W, INTRAVENOUS
     Route: 042
     Dates: start: 20060516
  2. MEDICATION (UNK INGREDIENT) (GENERIC COMPONENT(S)) [Concomitant]
  3. DILAUDID [Concomitant]
  4. DIOVAN [Concomitant]
  5. FENTANYL CITRATE [Concomitant]
  6. AMBIEN [Concomitant]
  7. LACTULOSE [Concomitant]
  8. HYDROCODONE (HYDROCODONE BITARTRATE) [Concomitant]
  9. L-THYROXINE (LEVOTHYROXINE SODIUM) [Concomitant]
  10. MARINOL [Concomitant]
  11. NEXIUM (ESOMPERAZOLE MAGNESIUM) [Concomitant]
  12. PROVIGIL [Concomitant]
  13. SENOKOT [Concomitant]
  14. WELLBUTRIN [Concomitant]
  15. ZYRTEC [Concomitant]

REACTIONS (4)
  - GRAND MAL CONVULSION [None]
  - HAEMATEMESIS [None]
  - NAUSEA [None]
  - REVERSIBLE POSTERIOR LEUKOENCEPHALOPATHY SYNDROME [None]
